FAERS Safety Report 6441546-4 (Version None)
Quarter: 2009Q4

REPORT INFORMATION
  Report Type: 
  Country: None (occurrence: None)
  Receive Date: 20091116
  Receipt Date: 20091106
  Transmission Date: 20100525
  Serious: Yes (Other)
  Sender: FDA-Public Use
  Company Number: GXKR2009GB12259

PATIENT
  Age: 49 Year
  Sex: Female
  Weight: 76 kg

DRUGS (2)
  1. ITRACONAZOLE (NGX) [Suspect]
     Indication: ONYCHOMYCOSIS
     Dosage: 100 MG, QD
     Route: 048
     Dates: start: 20081020, end: 20090201
  2. OMEPRAZOLE [Concomitant]
     Indication: OESOPHAGITIS
     Dosage: 20 MG, UNK
     Route: 048
     Dates: start: 20090127, end: 20090201

REACTIONS (2)
  - AMNESIA [None]
  - NAUSEA [None]
